FAERS Safety Report 12763771 (Version 1)
Quarter: 2016Q3

REPORT INFORMATION
  Report Type: Report from Study
  Country: US (occurrence: US)
  Receive Date: 20160920
  Receipt Date: 20160920
  Transmission Date: 20161109
  Serious: No
  Sender: FDA-Public Use
  Company Number: US-AMGEN-USASL2016123901

PATIENT
  Age: 58 Year
  Sex: Female

DRUGS (2)
  1. ENBREL [Suspect]
     Active Substance: ETANERCEPT
     Indication: RHEUMATOID ARTHRITIS
     Dosage: UNK UNK, QWK
     Route: 065
     Dates: start: 201607
  2. ENBREL [Suspect]
     Active Substance: ETANERCEPT
     Indication: SJOGREN^S SYNDROME

REACTIONS (5)
  - Condition aggravated [Unknown]
  - Injection site erythema [Unknown]
  - Muscular weakness [Unknown]
  - Rash papular [Unknown]
  - Injection site swelling [Unknown]

NARRATIVE: CASE EVENT DATE: 2016
